FAERS Safety Report 8825406 (Version 3)
Quarter: 2014Q3

REPORT INFORMATION
  Report Type: Spontaneous
  Country: US (occurrence: US)
  Receive Date: 20121004
  Receipt Date: 20140822
  Transmission Date: 20150326
  Serious: Yes (Hospitalization, Other)
  Sender: FDA-Public Use
  Company Number: US-009507513-2012SP034971

PATIENT
  Sex: Female
  Weight: 167.8 kg

DRUGS (3)
  1. NUVARING [Suspect]
     Active Substance: ETHINYL ESTRADIOL\ETONOGESTREL
     Indication: MENSTRUAL DISORDER
  2. BENICAR [Concomitant]
     Active Substance: OLMESARTAN MEDOXOMIL
     Indication: HYPERTENSION
     Dosage: 40 MG, UNK
     Route: 048
     Dates: start: 201106
  3. NUVARING [Suspect]
     Active Substance: ETHINYL ESTRADIOL\ETONOGESTREL
     Indication: CONTRACEPTION
     Dosage: UNK
     Route: 067
     Dates: start: 20050518, end: 20110804

REACTIONS (40)
  - Deep vein thrombosis [Recovering/Resolving]
  - Uterine leiomyoma [Unknown]
  - Palpitations [Unknown]
  - Adverse drug reaction [Unknown]
  - Depression [Unknown]
  - Retinal detachment [Unknown]
  - Iron deficiency anaemia [Unknown]
  - Hyperglycaemia [Unknown]
  - Hysterectomy [Unknown]
  - Breast pain [Unknown]
  - Dysmenorrhoea [Unknown]
  - Joint instability [Unknown]
  - Cholecystectomy [Unknown]
  - Hypertension [Unknown]
  - Nausea [Unknown]
  - Constipation [Unknown]
  - Pain in extremity [Unknown]
  - Weight increased [Unknown]
  - Migraine [Unknown]
  - Pelvic pain [Unknown]
  - Neck mass [Unknown]
  - Lower extremity mass [Unknown]
  - Gastrooesophageal reflux disease [Unknown]
  - Tremor [Unknown]
  - Anxiety [Unknown]
  - Muscle spasms [Unknown]
  - Tonsillectomy [Unknown]
  - Joint injury [Unknown]
  - Cholelithiasis [Unknown]
  - Eye operation [Unknown]
  - Anxiety [Unknown]
  - Back pain [Unknown]
  - Abdominal pain [Unknown]
  - Chest pain [Unknown]
  - Rash [Unknown]
  - Peripheral vascular disorder [Unknown]
  - Knee operation [Unknown]
  - Myomectomy [Unknown]
  - Neck surgery [Unknown]
  - Fatigue [Unknown]

NARRATIVE: CASE EVENT DATE: 20060626
